FAERS Safety Report 24771693 (Version 2)
Quarter: 2024Q4

REPORT INFORMATION
  Report Type: Spontaneous
  Country: CA (occurrence: CA)
  Receive Date: 20241224
  Receipt Date: 20241226
  Transmission Date: 20250114
  Serious: Yes (Other)
  Sender: PURDUE
  Company Number: CA-PURDUE-USA-2024-0314231

PATIENT
  Age: 23 Year
  Sex: Female
  Weight: 89.35 kg

DRUGS (1)
  1. METHYLPHENIDATE HYDROCHLORIDE [Suspect]
     Active Substance: METHYLPHENIDATE HYDROCHLORIDE
     Indication: Attention deficit hyperactivity disorder
     Dosage: 30 MILLIGRAM, 1 EVERY 1 DAYS
     Route: 048

REACTIONS (4)
  - Affect lability [Recovering/Resolving]
  - Affective disorder [Recovering/Resolving]
  - Mood altered [Recovering/Resolving]
  - Product substitution issue [Recovering/Resolving]
